FAERS Safety Report 5490972-9 (Version None)
Quarter: 2007Q4

REPORT INFORMATION
  Report Type: 
  Country: None (occurrence: None)
  Receive Date: 20071019
  Receipt Date: 20071008
  Transmission Date: 20080405
  Serious: Yes (Other)
  Sender: FDA-Public Use
  Company Number: IE-PFIZER INC-2007084661

PATIENT
  Age: 65 Year
  Sex: Female

DRUGS (2)
  1. CHAMPIX [Suspect]
     Indication: SMOKING CESSATION THERAPY
     Dosage: DAILY DOSE:2MG-FREQ:DAILY
     Route: 048
  2. ACETYLSALICYLIC ACID [Concomitant]

REACTIONS (2)
  - NAUSEA [None]
  - VOMITING [None]
